FAERS Safety Report 8285183-8 (Version None)
Quarter: 2012Q2

REPORT INFORMATION
  Report Type: 
  Country: None (occurrence: None)
  Receive Date: 20120413
  Receipt Date: 20110808
  Transmission Date: 20120825
  Serious: No
  Sender: FDA-Public Use
  Company Number: US-ASTRAZENECA-2011SE47849

PATIENT
  Sex: Female

DRUGS (7)
  1. CYMBALTA [Concomitant]
  2. TRAMADOL HCL [Concomitant]
  3. LORTAB [Concomitant]
     Indication: PAIN
  4. B-12 VITAMIN [Concomitant]
  5. NEXIUM [Suspect]
     Route: 048
  6. GABAPENTIN [Concomitant]
  7. REQUIP [Concomitant]

REACTIONS (2)
  - MALAISE [None]
  - DRUG DOSE OMISSION [None]
